FAERS Safety Report 20931453 (Version 1)
Quarter: 2022Q2

REPORT INFORMATION
  Report Type: Spontaneous
  Country: US (occurrence: US)
  Receive Date: 20220608
  Receipt Date: 20220608
  Transmission Date: 20220721
  Serious: No
  Sender: FDA-Public Use
  Company Number: US-TOLMAR, INC.-22US034870

PATIENT
  Age: 40 Year
  Sex: Male

DRUGS (2)
  1. KETOCONAZOLE [Suspect]
     Active Substance: KETOCONAZOLE
     Indication: Androgenetic alopecia
     Dosage: UNK
     Dates: start: 202203
  2. FINASTERIDE [Concomitant]
     Active Substance: FINASTERIDE
     Indication: Androgenetic alopecia
     Dosage: 1 MILLIGRAM
     Dates: start: 202203

REACTIONS (2)
  - Alopecia [Unknown]
  - Off label use [Unknown]
